FAERS Safety Report 18771956 (Version 1)
Quarter: 2021Q1

REPORT INFORMATION
  Report Type: Spontaneous
  Country: US (occurrence: US)
  Receive Date: 20210121
  Receipt Date: 20210121
  Transmission Date: 20210419
  Serious: Yes (Hospitalization)
  Sender: FDA-Public Use
  Company Number: US-ELI_LILLY_AND_COMPANY-US202101004555

PATIENT
  Age: 63 Year
  Sex: Female
  Weight: 113.83 kg

DRUGS (2)
  1. BAMLANIVIMAB 700MG [Suspect]
     Active Substance: BAMLANIVIMAB
     Indication: COVID-19
     Dosage: UNK, UNKNOWN
     Route: 042
     Dates: start: 20201230, end: 20201230
  2. REMDESIVIR. [Concomitant]
     Active Substance: REMDESIVIR
     Dosage: UNK, UNKNOWN
     Route: 065

REACTIONS (1)
  - COVID-19 pneumonia [Recovering/Resolving]

NARRATIVE: CASE EVENT DATE: 20210101
